FAERS Safety Report 18491985 (Version 1)
Quarter: 2020Q4

REPORT INFORMATION
  Report Type: Report from Study
  Country: IT (occurrence: IT)
  Receive Date: 20201111
  Receipt Date: 20201111
  Transmission Date: 20210114
  Serious: Yes (Other)
  Sender: FDA-Public Use
  Company Number: IT-TEVA-2020-IT-1846644

PATIENT
  Age: 70 Year
  Sex: Male

DRUGS (8)
  1. RAMIPRIL. [Suspect]
     Active Substance: RAMIPRIL
     Indication: HYPERTENSION
     Dosage: 20MG
     Route: 048
     Dates: start: 20190830, end: 20200830
  2. HALCION [Concomitant]
     Active Substance: TRIAZOLAM
     Dosage: 1.5 DOSAGE FORMS
  3. QUETIAPINE. [Concomitant]
     Active Substance: QUETIAPINE
     Dosage: 150MG
  4. CARDIOASPIRIN [Concomitant]
     Active Substance: ASPIRIN
  5. MYSOLINE [Concomitant]
     Active Substance: PRIMIDONE
     Dosage: 250MG
  6. DEPAKIN [Concomitant]
     Active Substance: VALPROATE SODIUM
     Dosage: 1300MG
  7. PURSENNID [Concomitant]
     Dosage: 1 DOSAGE FORMS
  8. METFORMIN [Concomitant]
     Active Substance: METFORMIN HYDROCHLORIDE
     Dosage: 3000MG

REACTIONS (2)
  - Hypertensive crisis [Recovering/Resolving]
  - Drug ineffective [Recovering/Resolving]

NARRATIVE: CASE EVENT DATE: 20200830
